FAERS Safety Report 8114598-3 (Version None)
Quarter: 2012Q1

REPORT INFORMATION
  Report Type: 
  Country: None (occurrence: None)
  Receive Date: 20120206
  Receipt Date: 20120130
  Transmission Date: 20120608
  Serious: No
  Sender: FDA-Public Use
  Company Number: US-PFIZER INC-2012026281

PATIENT
  Sex: Female

DRUGS (1)
  1. SUTENT [Suspect]
     Indication: RENAL CELL CARCINOMA
     Dosage: 50 MG, UNK
     Dates: start: 20120108

REACTIONS (5)
  - DYSPEPSIA [None]
  - STOMATITIS [None]
  - DYSGEUSIA [None]
  - DIARRHOEA [None]
  - ORAL PAIN [None]
